FAERS Safety Report 6177904-5 (Version None)
Quarter: 2009Q2

REPORT INFORMATION
  Report Type: 
  Country: None (occurrence: None)
  Receive Date: 20090504
  Receipt Date: 20090116
  Transmission Date: 20091009
  Serious: No
  Sender: FDA-Public Use
  Company Number: US-ALEXION-A200900050

PATIENT
  Sex: Female

DRUGS (4)
  1. SOLIRIS [Suspect]
     Indication: PAROXYSMAL NOCTURNAL HAEMOGLOBINURIA
     Dosage: 600 MG, QWK X4
     Route: 042
     Dates: start: 20070628, end: 20070718
  2. SOLIRIS [Suspect]
     Dosage: 900 MG, UNK
     Route: 042
     Dates: start: 20070725
  3. SOLIRIS [Suspect]
     Dosage: 900 MG, Q28D
     Route: 042
     Dates: start: 20081218, end: 20091218
  4. SOLIRIS [Suspect]
     Dosage: 900 MG, Q14D
     Route: 042
     Dates: start: 20090115

REACTIONS (5)
  - BLOOD LACTATE DEHYDROGENASE INCREASED [None]
  - BLOOD URINE PRESENT [None]
  - DECREASED APPETITE [None]
  - DYSPEPSIA [None]
  - DYSPHAGIA [None]
